FAERS Safety Report 26205097 (Version 1)
Quarter: 2025Q4

REPORT INFORMATION
  Report Type: Report from Study
  Country: IN (occurrence: IN)
  Receive Date: 20251228
  Receipt Date: 20251228
  Transmission Date: 20260117
  Serious: Yes (Hospitalization)
  Sender: ALEXION PHARMACEUTICALS
  Company Number: IN-AstraZeneca-CH-01018156A

PATIENT
  Sex: Male
  Weight: 50 kg

DRUGS (1)
  1. DURVALUMAB [Suspect]
     Active Substance: DURVALUMAB
     Indication: Cholangiocarcinoma
     Dosage: 1500 MILLIGRAM, Q3W

REACTIONS (6)
  - Gastrointestinal disorder [Unknown]
  - Seizure [Unknown]
  - Dehydration [Unknown]
  - Electrolyte imbalance [Unknown]
  - Movement disorder [Unknown]
  - Asthenia [Unknown]
